FAERS Safety Report 5519637-1 (Version None)
Quarter: 2007Q4

REPORT INFORMATION
  Report Type: 
  Country: None (occurrence: None)
  Receive Date: 20071114
  Receipt Date: 20071031
  Transmission Date: 20080405
  Serious: No
  Sender: FDA-Public Use
  Company Number: US021607

PATIENT
  Sex: Male

DRUGS (2)
  1. FENTORA [Suspect]
     Indication: GUILLAIN-BARRE SYNDROME
     Dosage: 600 MG BUCCAL
     Route: 002
  2. OXYCODONE HCL [Concomitant]

REACTIONS (1)
  - INCORRECT ROUTE OF DRUG ADMINISTRATION [None]
